FAERS Safety Report 24997190 (Version 1)
Quarter: 2025Q1

REPORT INFORMATION
  Report Type: Spontaneous
  Country: ES (occurrence: ES)
  Receive Date: 20250221
  Receipt Date: 20250221
  Transmission Date: 20250409
  Serious: Yes (Other)
  Sender: CELLTRION
  Company Number: ES-PFIZER INC-PV202400112295

PATIENT

DRUGS (1)
  1. INFLIXIMAB [Suspect]
     Active Substance: INFLIXIMAB
     Indication: Hidradenitis
     Route: 042

REACTIONS (2)
  - Paradoxical psoriatic arthritis [Recovered/Resolved]
  - Off label use [Unknown]
